FAERS Safety Report 7932975-8 (Version None)
Quarter: 2011Q4

REPORT INFORMATION
  Report Type: 
  Country: None (occurrence: None)
  Receive Date: 20111122
  Receipt Date: 20111111
  Transmission Date: 20120403
  Serious: Yes (Hospitalization, Other)
  Sender: FDA-Public Use
  Company Number: PHEH2011US008553

PATIENT
  Sex: Female
  Weight: 45.81 kg

DRUGS (8)
  1. ZAROXOLYN [Concomitant]
     Indication: OEDEMA
     Dosage: 5 MG, QW
     Route: 048
  2. LOVENOX [Concomitant]
     Dosage: 30 MG, DAILY
     Route: 058
  3. EXJADE [Suspect]
     Indication: IRON OVERLOAD
     Dosage: 750 MG, (250 MG + 500 MG) BID, DAILY
     Route: 048
     Dates: start: 20110621
  4. EXJADE [Suspect]
     Dosage: 500 MG, TID
     Dates: start: 20110729
  5. LOVENOX [Concomitant]
     Indication: DEEP VEIN THROMBOSIS
     Dosage: 10 MG, DAILY
     Route: 058
  6. LORAZEPAM [Concomitant]
     Indication: ANXIETY
     Dosage: 0.5 MG, PRN
     Route: 048
  7. BUMEX [Concomitant]
     Indication: DIURETIC THERAPY
     Dosage: 1 MG, BID
     Route: 048
  8. ROCEPHIN [Concomitant]
     Dosage: 1 G, UNK
     Route: 042

REACTIONS (32)
  - DYSPNOEA [None]
  - URINARY TRACT INFECTION [None]
  - SKIN HAEMORRHAGE [None]
  - ANAEMIA [None]
  - HYPERPHOSPHATAEMIA [None]
  - PULSE ABSENT [None]
  - RENAL IMPAIRMENT [None]
  - MALAISE [None]
  - NEPHROLITHIASIS [None]
  - OEDEMA PERIPHERAL [None]
  - DEPRESSION [None]
  - COUGH [None]
  - LEUKOCYTOSIS [None]
  - NOCTURIA [None]
  - ABDOMINAL DISTENSION [None]
  - FATIGUE [None]
  - PYREXIA [None]
  - DEHYDRATION [None]
  - DIARRHOEA [None]
  - RENAL FAILURE ACUTE [None]
  - INFECTION [None]
  - RESPIRATORY RATE INCREASED [None]
  - LETHARGY [None]
  - HEART RATE INCREASED [None]
  - CHILLS [None]
  - OEDEMA [None]
  - HYPOTENSION [None]
  - ORTHOPNOEA [None]
  - WEIGHT DECREASED [None]
  - SINUS TACHYCARDIA [None]
  - HYPONATRAEMIA [None]
  - BLOOD GLUCOSE INCREASED [None]
